FAERS Safety Report 19649627 (Version 2)
Quarter: 2021Q3

REPORT INFORMATION
  Report Type: Spontaneous
  Country: GB (occurrence: GB)
  Receive Date: 20210803
  Receipt Date: 20210824
  Transmission Date: 20211014
  Serious: Yes (Other)
  Sender: FDA-Public Use
  Company Number: GB-ACCORD-233733

PATIENT
  Age: 68 Year
  Sex: Female
  Weight: 63 kg

DRUGS (11)
  1. OMEPRAZOLE. [Concomitant]
     Active Substance: OMEPRAZOLE
     Dates: start: 20181127
  2. CODEINE [Concomitant]
     Active Substance: CODEINE
     Dosage: UP TO 4 TIMES A DAY
     Dates: start: 20191030
  3. EPILIM [Concomitant]
     Active Substance: VALPROATE SODIUM
     Dosage: MORNING AND NIGHT
     Dates: start: 20181127
  4. AMLODIPINE [Suspect]
     Active Substance: AMLODIPINE BESYLATE
     Indication: PRODUCT USED FOR UNKNOWN INDICATION
     Dates: start: 20210430
  5. ACCRETE D3 [Concomitant]
     Active Substance: CALCIUM CARBONATE\CHOLECALCIFEROL
     Dates: start: 20200221
  6. MELOXICAM. [Concomitant]
     Active Substance: MELOXICAM
     Dates: start: 20181127
  7. LAMOTRIGINE. [Concomitant]
     Active Substance: LAMOTRIGINE
     Dates: start: 20181127
  8. QUETIAPINE/QUETIAPINE FUMARATE [Concomitant]
     Active Substance: QUETIAPINE FUMARATE
     Dosage: NIGHT
     Dates: start: 20190618
  9. LAXIDO [Concomitant]
     Active Substance: POLYETHYLENE GLYCOL 3350\POTASSIUM CHLORIDE\SODIUM BICARBONATE\SODIUM CHLORIDE
     Dosage: ONE TO BE TAKEN ONCE OR TWICE DAILY DISSOLVED I...
     Dates: start: 20201103, end: 20210526
  10. SENNA ALEXANDRINA [Concomitant]
     Active Substance: SENNA LEAF
     Dosage: TAKE 1 OR 2 AT NIGHT WHEN NEEDED
     Dates: start: 20210520
  11. BENDROFLUMETHIAZIDE [Concomitant]
     Active Substance: BENDROFLUMETHIAZIDE
     Dosage: IN MORNING.
     Dates: start: 20210716

REACTIONS (3)
  - Diplopia [Recovered/Resolved]
  - Hallucinations, mixed [Recovered/Resolved]
  - Balance disorder [Recovered/Resolved]

NARRATIVE: CASE EVENT DATE: 20210716
